FAERS Safety Report 25962993 (Version 1)
Quarter: 2025Q4

REPORT INFORMATION
  Report Type: Spontaneous
  Country: CA (occurrence: CA)
  Receive Date: 20251027
  Receipt Date: 20251027
  Transmission Date: 20260117
  Serious: Yes (Other)
  Sender: PFIZER
  Company Number: CA-PFIZER INC-202500205045

PATIENT
  Age: 52 Year
  Sex: Male

DRUGS (2)
  1. ABRILADA [Suspect]
     Active Substance: ADALIMUMAB-AFZB
     Indication: Crohn^s disease
     Dosage: 160 MG W0, 80 MG W2, THEN 40 MG EVERY 2 WEEKS
     Route: 058
     Dates: start: 20251007
  2. ABRILADA [Suspect]
     Active Substance: ADALIMUMAB-AFZB
     Dosage: 40 MG, 2 WEEKS, (EVERY 2 WEEKS W0 160MGW2 80MG)
     Route: 042
     Dates: start: 20251021

REACTIONS (4)
  - Influenza like illness [Unknown]
  - Disease recurrence [Unknown]
  - Headache [Recovered/Resolved]
  - Rhinorrhoea [Recovered/Resolved]

NARRATIVE: CASE EVENT DATE: 20250101
